FAERS Safety Report 5315575-8 (Version None)
Quarter: 2007Q2

REPORT INFORMATION
  Report Type: 
  Country: None (occurrence: None)
  Receive Date: 20070503
  Receipt Date: 20070425
  Transmission Date: 20071010
  Serious: Yes (Death)
  Sender: FDA-Public Use
  Company Number: US-BAXTER-2006BH014532

PATIENT
  Age: 19 Year
  Sex: Female
  Weight: 52 kg

DRUGS (3)
  1. ANTICOAGULANT SODIUM CITRATE SOLUTION [Suspect]
     Indication: PLASMAPHERESIS
     Route: 065
  2. SODIUM CHLORIDE 0.9% IN PLASTIC CONTAINER [Suspect]
     Indication: PLASMAPHERESIS
     Route: 065
  3. ANTI-CONTRACEPTIVE MEDICATIONS [Concomitant]
     Indication: DRUG USE FOR UNKNOWN INDICATION
     Dosage: DOSE UNIT:UNKNOWN
     Route: 065

REACTIONS (1)
  - DEATH [None]
